FAERS Safety Report 4763869-7 (Version None)
Quarter: 2005Q3

REPORT INFORMATION
  Report Type: 
  Country: None (occurrence: None)
  Receive Date: 20050906
  Receipt Date: 20050520
  Transmission Date: 20060218
  Serious: No
  Sender: FDA-Public Use
  Company Number: 2005-BP-08353BP

PATIENT
  Age: 77 Year
  Sex: Male

DRUGS (11)
  1. SPIRIVA [Suspect]
     Indication: CHRONIC OBSTRUCTIVE PULMONARY DISEASE
     Dosage: 18 MCG (18 MCG QD) IH
     Route: 055
     Dates: end: 20050601
  2. ADVAIR DISKUS 100/50 [Concomitant]
  3. FLONASE [Concomitant]
  4. TOPROL-XL [Concomitant]
  5. ALLEGRA [Concomitant]
  6. SINGULAIR (MONTELEUKAST) [Concomitant]
  7. ACETYLSALICYLIC ACID SRT [Concomitant]
  8. ALBUTEROL SULFATE AND IPRATROPIUM BROMIDE [Concomitant]
  9. TOPAL (TOPAL) [Concomitant]
  10. UNIPHYL [Concomitant]
  11. COMBIVENT (COMBIVENT/GFR/) [Concomitant]

REACTIONS (6)
  - DIZZINESS [None]
  - DRY MOUTH [None]
  - DYSPNOEA [None]
  - FALL [None]
  - NERVOUSNESS [None]
  - VOMITING [None]
